FAERS Safety Report 6543496-1 (Version None)
Quarter: 2010Q1

REPORT INFORMATION
  Report Type: 
  Country: None (occurrence: None)
  Receive Date: 20100120
  Receipt Date: 20100115
  Transmission Date: 20100710
  Serious: Yes (Other)
  Sender: FDA-Public Use
  Company Number: B0610915A

PATIENT
  Sex: Female

DRUGS (7)
  1. RELENZA [Suspect]
     Indication: INFLUENZA
     Dosage: 10MG TWICE PER DAY
     Route: 055
     Dates: start: 20091121
  2. CEFDINIR [Suspect]
     Indication: BRONCHITIS
     Dosage: 100MG THREE TIMES PER DAY
     Route: 048
  3. CALONAL [Suspect]
     Indication: ANTIPYRESIS
     Dosage: 200MG THREE TIMES PER DAY
     Route: 048
  4. MEDICON [Suspect]
     Indication: COUGH
     Dosage: 15MG THREE TIMES PER DAY
     Route: 048
  5. HUSCODE [Suspect]
     Indication: COUGH
     Dosage: 6MG THREE TIMES PER DAY
     Route: 048
  6. UNKNOWN DRUG [Suspect]
     Indication: DRUG USE FOR UNKNOWN INDICATION
     Route: 048
  7. ANHIBA [Concomitant]
     Route: 054

REACTIONS (4)
  - ALTERED STATE OF CONSCIOUSNESS [None]
  - HYPERHIDROSIS [None]
  - PULSE PRESSURE DECREASED [None]
  - SHOCK [None]
